FAERS Safety Report 22953713 (Version 5)
Quarter: 2024Q1

REPORT INFORMATION
  Report Type: Spontaneous
  Country: US (occurrence: US)
  Receive Date: 20230918
  Receipt Date: 20240117
  Transmission Date: 20240410
  Serious: No
  Sender: FDA-Public Use
  Company Number: US-BIOVITRUM-2023-US-011006

PATIENT
  Age: 88 Year
  Sex: Male

DRUGS (4)
  1. DOPTELET [Suspect]
     Active Substance: AVATROMBOPAG MALEATE
     Indication: Platelet count decreased
     Dosage: DAILY
     Route: 048
  2. DOPTELET [Suspect]
     Active Substance: AVATROMBOPAG MALEATE
     Indication: Immune thrombocytopenia
     Dosage: OVER A YEAR MONDAY-WED-FRI 2 TABS 1 ALL OTHER DAYS TAKEN THE 2 MAKES, AS DIRECTED
     Route: 048
     Dates: start: 20200526
  3. DOPTELET [Suspect]
     Active Substance: AVATROMBOPAG MALEATE
     Dosage: DAILY
     Route: 048
  4. DOPTELET [Suspect]
     Active Substance: AVATROMBOPAG MALEATE
     Dosage: AS ORDERED
     Route: 048

REACTIONS (11)
  - Headache [Unknown]
  - Ear pain [Not Recovered/Not Resolved]
  - Dizziness [Unknown]
  - Ear discomfort [Not Recovered/Not Resolved]
  - Balance disorder [Unknown]
  - Gait disturbance [Unknown]
  - Head discomfort [Unknown]
  - Fatigue [Unknown]
  - Insomnia [Unknown]
  - Platelet count decreased [Unknown]
  - Skin discolouration [Unknown]
